FAERS Safety Report 19116822 (Version 4)
Quarter: 2021Q2

REPORT INFORMATION
  Report Type: Spontaneous
  Country: US (occurrence: US)
  Receive Date: 20210410
  Receipt Date: 20210521
  Transmission Date: 20210717
  Serious: Yes (Hospitalization, Other)
  Sender: FDA-Public Use
  Company Number: US-UNITED THERAPEUTICS-UNT-2021-005988

PATIENT
  Age: 50 Year
  Sex: Female
  Weight: 86.17 kg

DRUGS (6)
  1. REMODULIN [Suspect]
     Active Substance: TREPROSTINIL
     Indication: PULMONARY ARTERIAL HYPERTENSION
     Dosage: UNK, CONTINUING
     Route: 058
     Dates: start: 20101215
  2. REMODULIN [Suspect]
     Active Substance: TREPROSTINIL
     Dosage: 0.042 ?G/KG, CONTINUING
     Route: 058
  3. ELIQUIS [Concomitant]
     Active Substance: APIXABAN
     Indication: PRODUCT USED FOR UNKNOWN INDICATION
     Dosage: UNK
     Route: 065
  4. ADCIRCA [Concomitant]
     Active Substance: TADALAFIL
     Indication: PULMONARY ARTERIAL HYPERTENSION
     Dosage: UNK
     Route: 065
  5. SILDENAFIL CITRATE. [Concomitant]
     Active Substance: SILDENAFIL CITRATE
     Indication: PRODUCT USED FOR UNKNOWN INDICATION
     Dosage: UNK
     Route: 065
  6. OPSUMIT [Concomitant]
     Active Substance: MACITENTAN
     Indication: PRODUCT USED FOR UNKNOWN INDICATION
     Dosage: UNK
     Route: 065

REACTIONS (8)
  - Hepatic cirrhosis [Unknown]
  - Pulmonary arterial hypertension [Unknown]
  - Abdominal distension [Unknown]
  - Oedema [Unknown]
  - Fluid overload [Unknown]
  - Ascites [Unknown]
  - Dyspnoea [Unknown]
  - Liver injury [Unknown]

NARRATIVE: CASE EVENT DATE: 20210321
